FAERS Safety Report 10157721 (Version 2)
Quarter: 2014Q2

REPORT INFORMATION
  Report Type: Report from Study
  Country: TR (occurrence: TR)
  Receive Date: 20140507
  Receipt Date: 20140609
  Transmission Date: 20141212
  Serious: Yes (Other)
  Sender: FDA-Public Use
  Company Number: PHHY2014TR053135

PATIENT
  Age: 30 Year
  Sex: Male

DRUGS (2)
  1. EXJADE [Suspect]
     Indication: THALASSAEMIA BETA
     Dosage: 2000 MG, DAILY
     Route: 048
  2. EXJADE [Suspect]
     Dosage: 2000 MG, DAILY
     Route: 048

REACTIONS (2)
  - General physical health deterioration [Recovered/Resolved]
  - Abdominal pain [Recovered/Resolved]
